FAERS Safety Report 14196631 (Version 2)
Quarter: 2017Q4

REPORT INFORMATION
  Report Type: Spontaneous
  Country: US (occurrence: US)
  Receive Date: 20171116
  Receipt Date: 20171121
  Transmission Date: 20180321
  Serious: Yes (Hospitalization)
  Sender: FDA-Public Use
  Company Number: US-PFIZER INC-2017493240

PATIENT
  Age: 18 Year
  Sex: Male
  Weight: 86.17 kg

DRUGS (1)
  1. DEPO-MEDROL [Suspect]
     Active Substance: METHYLPREDNISOLONE ACETATE
     Indication: HYPERSENSITIVITY
     Dosage: UNK
     Route: 042
     Dates: start: 20171110

REACTIONS (12)
  - Nausea [Unknown]
  - Pallor [Unknown]
  - Hyperhidrosis [Unknown]
  - Hypoaesthesia [Unknown]
  - Heart rate increased [Recovered/Resolved]
  - Cold sweat [Unknown]
  - Blood glucose increased [Recovered/Resolved]
  - Incorrect route of drug administration [Unknown]
  - Overdose [Unknown]
  - Movement disorder [Unknown]
  - Dizziness [Unknown]
  - Hypertension [Recovered/Resolved]

NARRATIVE: CASE EVENT DATE: 20171110
